FAERS Safety Report 8844509 (Version 1)
Quarter: 2012Q4

REPORT INFORMATION
  Report Type: Spontaneous
  Country: DK (occurrence: None)
  Receive Date: 20121012
  Receipt Date: 20121012
  Transmission Date: 20130627
  Serious: Yes (Other)
  Sender: FDA-Public Use
  Company Number: 2012MA012040

PATIENT
  Age: 43 Year
  Sex: Female

DRUGS (4)
  1. METOCLOPRAMIDE TABLETS USP, 10 MG (PUREPAC) [Suspect]
     Indication: ACID DYSPEPSIA
     Dosage: 1 DF; BID; PO
     Route: 048
     Dates: start: 20120826, end: 20120829
  2. LEVETIRACETAM [Concomitant]
  3. OMEPRAZOLE [Concomitant]
  4. CITALOPRAM [Concomitant]

REACTIONS (6)
  - Headache [None]
  - Confusional state [None]
  - Fatigue [None]
  - Photophobia [None]
  - Disturbance in attention [None]
  - Feeling abnormal [None]
